FAERS Safety Report 7393897-7 (Version None)
Quarter: 2011Q2

REPORT INFORMATION
  Report Type: 
  Country: None (occurrence: None)
  Receive Date: 20110405
  Receipt Date: 20110322
  Transmission Date: 20111010
  Serious: Yes (Hospitalization)
  Sender: FDA-Public Use
  Company Number: US-ACTELION-A-US2010-41291

PATIENT

DRUGS (5)
  1. REVATIO [Concomitant]
  2. METOPROLOL [Concomitant]
  3. TREPROSTINIL [Concomitant]
  4. TRACLEER [Suspect]
     Indication: PULMONARY ARTERIAL HYPERTENSION
     Dosage: UNK
     Route: 048
     Dates: start: 20080716
  5. CALCIUM CHANNEL BLOCKERS [Concomitant]

REACTIONS (5)
  - PULMONARY HYPERTENSION [None]
  - LOSS OF CONSCIOUSNESS [None]
  - CONDITION AGGRAVATED [None]
  - HYPOTENSION [None]
  - SYNCOPE [None]
